FAERS Safety Report 6221943-2 (Version None)
Quarter: 2009Q2

REPORT INFORMATION
  Report Type: 
  Country: None (occurrence: None)
  Receive Date: 20090609
  Receipt Date: 20090609
  Transmission Date: 20091009
  Serious: Yes (Hospitalization)
  Sender: FDA-Public Use
  Company Number: None

PATIENT
  Sex: Female
  Weight: 97.7 kg

DRUGS (1)
  1. CYTARABINE [Suspect]
     Dosage: 37.5 MG
     Dates: end: 20050727

REACTIONS (6)
  - ALPHA HAEMOLYTIC STREPTOCOCCAL INFECTION [None]
  - BACTERIA BLOOD IDENTIFIED [None]
  - FEBRILE NEUTROPENIA [None]
  - HERPES SIMPLEX [None]
  - MENTAL STATUS CHANGES [None]
  - RESPIRATORY FAILURE [None]
